FAERS Safety Report 24927483 (Version 8)
Quarter: 2025Q4

REPORT INFORMATION
  Report Type: Spontaneous
  Country: US (occurrence: US)
  Receive Date: 20250205
  Receipt Date: 20251229
  Transmission Date: 20260117
  Serious: Yes (Hospitalization, Other)
  Sender: BRISTOL-MYERS SQUIBB COMPANY
  Company Number: US-BRISTOL-MYERS SQUIBB COMPANY-2025-017095

PATIENT
  Age: 91 Year
  Sex: Female

DRUGS (2)
  1. POMALYST [Suspect]
     Active Substance: POMALIDOMIDE
     Indication: Plasma cell myeloma
     Dosage: FREQUENCY: TAKE 1 CAPSULE BY MOUTH DAILY FOR 14 DAYS ON, THEN 14 DAYS OFF
     Route: 048
  2. POMALYST [Suspect]
     Active Substance: POMALIDOMIDE
     Route: 048

REACTIONS (11)
  - Fatigue [Recovered/Resolved]
  - Impaired healing [Unknown]
  - Tooth disorder [Unknown]
  - Loose tooth [Unknown]
  - Chest discomfort [Unknown]
  - Osteomyelitis [Recovered/Resolved]
  - Blood calcium increased [Unknown]
  - Weight decreased [Unknown]
  - Plasma cell myeloma [Unknown]
  - Product dose omission issue [Unknown]
  - Cardiac failure congestive [Unknown]
